FAERS Safety Report 8097578-6 (Version None)
Quarter: 2012Q1

REPORT INFORMATION
  Report Type: 
  Country: None (occurrence: None)
  Receive Date: 20120128
  Receipt Date: 20110720
  Transmission Date: 20120608
  Serious: No
  Sender: FDA-Public Use
  Company Number: US-ABBOTT-07P-163-0417757-00

PATIENT
  Sex: Female
  Weight: 54.48 kg

DRUGS (4)
  1. METRONIDAZOLE [Concomitant]
     Indication: CROHN'S DISEASE
     Route: 048
     Dates: start: 20020101
  2. MESALAMINE [Concomitant]
     Indication: CROHN'S DISEASE
     Route: 048
     Dates: start: 20020101
  3. LOW DOSE FLAGYL [Concomitant]
     Indication: PRODUCT USED FOR UNKNOWN INDICATION
  4. HUMIRA [Suspect]
     Indication: CROHN'S DISEASE
     Route: 058
     Dates: start: 20070803, end: 20080101

REACTIONS (5)
  - LUNG NEOPLASM [None]
  - PYREXIA [None]
  - FATIGUE [None]
  - PNEUMONIA [None]
  - COUGH [None]
